FAERS Safety Report 9305103 (Version 1)
Quarter: 2013Q2

REPORT INFORMATION
  Report Type: Spontaneous
  Country: US (occurrence: None)
  Receive Date: 20130522
  Receipt Date: 20130522
  Transmission Date: 20140414
  Serious: Yes (Other)
  Sender: FDA-Public Use
  Company Number: None

PATIENT
  Age: 63 Year
  Sex: Female
  Weight: 66.23 kg

DRUGS (1)
  1. STIVARGA 40MG BAYER [Suspect]
     Indication: COLON CANCER
     Dosage: 160 MG QD PO
     Route: 048
     Dates: start: 20130301, end: 20130324

REACTIONS (4)
  - Stomatitis [None]
  - Alopecia [None]
  - Diarrhoea [None]
  - Fatigue [None]
